FAERS Safety Report 14669229 (Version 1)
Quarter: 2018Q1

REPORT INFORMATION
  Report Type: Spontaneous
  Country: GB (occurrence: GB)
  Receive Date: 20180322
  Receipt Date: 20180322
  Transmission Date: 20180509
  Serious: Yes (Other)
  Sender: FDA-Public Use
  Company Number: GB-ASTRAZENECA-2018SE34273

PATIENT
  Age: 66 Year
  Sex: Female

DRUGS (23)
  1. BUMETANIDE. [Concomitant]
     Active Substance: BUMETANIDE
  2. DOXAZOSIN [Concomitant]
     Active Substance: DOXAZOSIN\DOXAZOSIN MESYLATE
  3. DULOXETINE. [Concomitant]
     Active Substance: DULOXETINE
  4. IRBESARTAN. [Concomitant]
     Active Substance: IRBESARTAN
  5. AMITRIPTYLINE [Concomitant]
     Active Substance: AMITRIPTYLINE
  6. TIOTROPIUM BROMIDE [Concomitant]
     Active Substance: TIOTROPIUM BROMIDE
  7. NALOXONE [Concomitant]
     Active Substance: NALOXONE
  8. OMEPRAZOLE. [Suspect]
     Active Substance: OMEPRAZOLE
     Route: 048
  9. FOLIC ACID. [Concomitant]
     Active Substance: FOLIC ACID
  10. QUININE BISULFATE [Concomitant]
     Active Substance: QUININE BISULFATE
  11. TEICOPLANIN [Concomitant]
     Active Substance: TEICOPLANIN
  12. MOXONIDINE [Concomitant]
     Active Substance: MOXONIDINE
  13. METFORMIN [Concomitant]
     Active Substance: METFORMIN HYDROCHLORIDE
  14. CLOPIDOGREL [Concomitant]
     Active Substance: CLOPIDOGREL BISULFATE
  15. MEROPENEM. [Concomitant]
     Active Substance: MEROPENEM
  16. AMLODIPINE [Concomitant]
     Active Substance: AMLODIPINE BESYLATE
  17. FLUTICASONE PROPIONATE. [Concomitant]
     Active Substance: FLUTICASONE PROPIONATE
  18. BISACODYL. [Concomitant]
     Active Substance: BISACODYL
  19. ENOXAPARIN SODIUM. [Concomitant]
     Active Substance: ENOXAPARIN SODIUM
  20. MONTELUKAST [Concomitant]
     Active Substance: MONTELUKAST SODIUM
  21. OXYCODONE [Concomitant]
     Active Substance: OXYCODONE
  22. SODIUM BICARBONATE. [Concomitant]
     Active Substance: SODIUM BICARBONATE
  23. SIMVASTATIN. [Concomitant]
     Active Substance: SIMVASTATIN

REACTIONS (2)
  - Eosinophil count increased [Recovered/Resolved]
  - Tubulointerstitial nephritis [Recovered/Resolved]

NARRATIVE: CASE EVENT DATE: 20180218
